FAERS Safety Report 22127288 (Version 1)
Quarter: 2023Q1

REPORT INFORMATION
  Report Type: Spontaneous
  Country: US (occurrence: US)
  Receive Date: 20230322
  Receipt Date: 20230322
  Transmission Date: 20230418
  Serious: No
  Sender: FDA-Public Use
  Company Number: US-ALLERGAN-2218718US

PATIENT
  Sex: Female
  Weight: 56.689 kg

DRUGS (3)
  1. KYBELLA [Suspect]
     Active Substance: DEOXYCHOLIC ACID
     Indication: Lipolysis procedure
     Dosage: 2 ML, SINGLE
     Route: 058
     Dates: start: 20220510, end: 20220510
  2. IRON [Concomitant]
     Active Substance: IRON
     Indication: Product used for unknown indication
  3. VITAMIN D NOS [Concomitant]
     Active Substance: VITAMIN D NOS
     Indication: Product used for unknown indication

REACTIONS (2)
  - Product preparation issue [Unknown]
  - Drug ineffective [Unknown]
